FAERS Safety Report 13644345 (Version 1)
Quarter: 2017Q2

REPORT INFORMATION
  Report Type: Spontaneous
  Country: US (occurrence: US)
  Receive Date: 20170612
  Receipt Date: 20170612
  Transmission Date: 20170830
  Serious: No
  Sender: FDA-Public Use
  Company Number: US-ROCHE-1304018

PATIENT
  Sex: Female

DRUGS (2)
  1. XELODA [Suspect]
     Active Substance: CAPECITABINE
     Indication: BREAST CANCER
     Dosage: 2 TABLETS, 2X DAILY  14 DAYS ON 7 DAYS OFF
     Route: 048
     Dates: start: 20131105
  2. ONDANSETRON [Concomitant]
     Active Substance: ONDANSETRON
     Dosage: ORAL DISINTEGRATING TABLETS
     Route: 048

REACTIONS (6)
  - Vomiting [Unknown]
  - Pain [Unknown]
  - Diarrhoea [Unknown]
  - Chest pain [Unknown]
  - Rash [Unknown]
  - Feeling hot [Unknown]
